FAERS Safety Report 23544837 (Version 1)
Quarter: 2024Q1

REPORT INFORMATION
  Report Type: Spontaneous
  Country: US (occurrence: US)
  Receive Date: 20240220
  Receipt Date: 20240220
  Transmission Date: 20240409
  Serious: No
  Sender: FDA-Public Use
  Company Number: US-AMGEN-USASP2024033695

PATIENT
  Age: 36 Year
  Sex: Female

DRUGS (1)
  1. REPATHA [Suspect]
     Active Substance: EVOLOCUMAB
     Indication: Type IIa hyperlipidaemia
     Dosage: UNK, QMO
     Route: 065
     Dates: start: 20240214

REACTIONS (2)
  - Injection site swelling [Unknown]
  - Pain [Unknown]

NARRATIVE: CASE EVENT DATE: 20240214
